FAERS Safety Report 9110433 (Version 2)
Quarter: 2013Q1

REPORT INFORMATION
  Report Type: Spontaneous
  Country: HU (occurrence: HU)
  Receive Date: 20130222
  Receipt Date: 20130226
  Transmission Date: 20140127
  Serious: Yes (Other)
  Sender: FDA-Public Use
  Company Number: HU-TEVA-385898ISR

PATIENT
  Age: 46 Year
  Sex: Female

DRUGS (2)
  1. AMOXICILLIN AND CLAVULANIC ACID [Suspect]
     Indication: ERYSIPELAS
     Dosage: 1500 MILLIGRAM DAILY;
     Route: 048
  2. AMOXICILLIN AND CLAVULANIC ACID [Suspect]
     Dosage: 375 MILLIGRAM DAILY;
     Route: 048

REACTIONS (2)
  - Necrotising fasciitis [Unknown]
  - Drug ineffective [Unknown]
